FAERS Safety Report 6872431-1 (Version None)
Quarter: 2010Q3

REPORT INFORMATION
  Report Type: 
  Country: None (occurrence: None)
  Receive Date: 20100723
  Receipt Date: 20080926
  Transmission Date: 20110219
  Serious: No
  Sender: FDA-Public Use
  Company Number: US-PFIZER INC-2008082767

PATIENT
  Sex: Male

DRUGS (2)
  1. CHANTIX [Suspect]
  2. ALL OTHER THERAPEUTIC PRODUCTS [Suspect]

REACTIONS (7)
  - ABNORMAL DREAMS [None]
  - ASTHENIA [None]
  - ATRIAL FIBRILLATION [None]
  - EMPHYSEMA [None]
  - INSOMNIA [None]
  - SLEEP APNOEA SYNDROME [None]
  - SOMNOLENCE [None]
